FAERS Safety Report 7126906-0 (Version None)
Quarter: 2010Q4

REPORT INFORMATION
  Report Type: 
  Country: None (occurrence: None)
  Receive Date: 20101129
  Receipt Date: 20091218
  Transmission Date: 20110411
  Serious: No
  Sender: FDA-Public Use
  Company Number: US-PFIZER INC-2009307225

PATIENT
  Sex: Male
  Weight: 87.5 kg

DRUGS (3)
  1. VIAGRA [Suspect]
     Indication: SEXUAL DYSFUNCTION
     Dosage: 50 MG, UNK
     Dates: start: 20091203
  2. POTASSIUM CHLORIDE [Concomitant]
     Dosage: UNK
  3. CLONIDINE [Concomitant]
     Dosage: UNK

REACTIONS (2)
  - DRUG INEFFECTIVE [None]
  - LIBIDO DECREASED [None]
